FAERS Safety Report 17519208 (Version 1)
Quarter: 2020Q1

REPORT INFORMATION
  Report Type: Spontaneous
  Country: FR (occurrence: FR)
  Receive Date: 20200309
  Receipt Date: 20200309
  Transmission Date: 20200409
  Serious: Yes (Hospitalization, Other)
  Sender: FDA-Public Use
  Company Number: FR-MYLANLABS-2020M1024147

PATIENT
  Age: 3 Decade
  Sex: Female

DRUGS (10)
  1. CINACALCET HYDROCHLORIDE. [Suspect]
     Active Substance: CINACALCET HYDROCHLORIDE
     Dosage: 30 MILLIGRAM, QD
     Route: 065
     Dates: start: 20060307
  2. CINACALCET HYDROCHLORIDE. [Suspect]
     Active Substance: CINACALCET HYDROCHLORIDE
     Dosage: 150 MILLIGRAM, QD
     Route: 065
     Dates: start: 2007, end: 200705
  3. SEVELAMER [Concomitant]
     Active Substance: SEVELAMER
     Indication: HYPERPARATHYROIDISM SECONDARY
     Dosage: 4800 MILLIGRAM, QD
     Route: 065
  4. CINACALCET HYDROCHLORIDE. [Suspect]
     Active Substance: CINACALCET HYDROCHLORIDE
     Indication: HYPERPARATHYROIDISM SECONDARY
     Dosage: 120 MILLIGRAM, QD
     Route: 065
     Dates: start: 2006
  5. CINACALCET HYDROCHLORIDE. [Suspect]
     Active Substance: CINACALCET HYDROCHLORIDE
     Dosage: 60 MILLIGRAM, QD
     Route: 065
     Dates: start: 2006
  6. SEVELAMER [Concomitant]
     Active Substance: SEVELAMER
     Dosage: 7200 MILLIGRAM, QD
     Route: 065
  7. ALFACALCIDOL [Concomitant]
     Active Substance: ALFACALCIDOL
     Indication: HYPERPARATHYROIDISM SECONDARY
     Dosage: UNK
     Route: 065
  8. CINACALCET HYDROCHLORIDE. [Suspect]
     Active Substance: CINACALCET HYDROCHLORIDE
     Dosage: 90 MILLIGRAM, QD
     Route: 065
     Dates: start: 2006
  9. CHOLECALCIFEROL [Concomitant]
     Active Substance: CHOLECALCIFEROL
     Dosage: UNK
     Route: 065
  10. CALCIUM CARBONATE. [Concomitant]
     Active Substance: CALCIUM CARBONATE
     Indication: HYPERPARATHYROIDISM SECONDARY
     Dosage: UNK
     Route: 065

REACTIONS (4)
  - Oncocytoma [Recovered/Resolved]
  - Blood parathyroid hormone increased [Recovered/Resolved]
  - Maternal exposure during pregnancy [Unknown]
  - Paradoxical drug reaction [Recovered/Resolved]
